FAERS Safety Report 4347509-7 (Version None)
Quarter: 2004Q2

REPORT INFORMATION
  Report Type: 
  Country: None (occurrence: None)
  Receive Date: 20040421
  Receipt Date: 20040314
  Transmission Date: 20050107
  Serious: Yes (Other)
  Sender: FDA-Public Use
  Company Number: 2004017971

PATIENT
  Age: 43 Year

DRUGS (1)
  1. RELPAX [Suspect]
     Indication: ILL-DEFINED DISORDER

REACTIONS (2)
  - CHEST PAIN [None]
  - MUSCLE TIGHTNESS [None]
